FAERS Safety Report 13333298 (Version 2)
Quarter: 2017Q2

REPORT INFORMATION
  Report Type: Spontaneous
  Country: GB (occurrence: GB)
  Receive Date: 20170313
  Receipt Date: 20170405
  Transmission Date: 20170830
  Serious: Yes (Death, Other)
  Sender: FDA-Public Use
  Company Number: GB-MYLANLABS-2017M1015552

PATIENT

DRUGS (6)
  1. CLOZARIL [Suspect]
     Active Substance: CLOZAPINE
     Indication: SCHIZOPHRENIA
     Dosage: UNK
     Route: 048
     Dates: start: 20060623
  2. CLOZARIL [Suspect]
     Active Substance: CLOZAPINE
     Indication: PARKINSON^S DISEASE
  3. CLOZARIL [Suspect]
     Active Substance: CLOZAPINE
     Indication: HALLUCINATION
  4. SINEMET [Concomitant]
     Active Substance: CARBIDOPA\LEVODOPA
     Indication: PRODUCT USE ISSUE
     Dosage: UNK
  5. ROTIGOTINE [Concomitant]
     Active Substance: ROTIGOTINE
     Indication: PRODUCT USE ISSUE
     Dosage: 8 MG, QD
  6. MADOPAR DISPERSIBLE [Concomitant]
     Indication: PRODUCT USE ISSUE
     Dosage: 62.5 MG, PRN

REACTIONS (4)
  - Dysphagia [Unknown]
  - Parkinson^s disease [Fatal]
  - Pneumonia aspiration [Unknown]
  - Disease progression [Fatal]
